FAERS Safety Report 26138521 (Version 1)
Quarter: 2025Q4

REPORT INFORMATION
  Report Type: Report from Study
  Country: PE (occurrence: PE)
  Receive Date: 20251210
  Receipt Date: 20251210
  Transmission Date: 20260118
  Serious: Yes (Hospitalization)
  Sender: ROCHE
  Company Number: PE-ROCHE-10000449126

PATIENT
  Age: 47 Year
  Sex: Female

DRUGS (1)
  1. ACTEMRA [Suspect]
     Active Substance: TOCILIZUMAB
     Indication: Rheumatoid arthritis
     Route: 042

REACTIONS (6)
  - Arthritis [Unknown]
  - Arthropathy [Unknown]
  - Cyst [Unknown]
  - Spinal cord compression [Unknown]
  - Ill-defined disorder [Unknown]
  - Spinal column injury [Unknown]
